FAERS Safety Report 12424776 (Version 1)
Quarter: 2016Q2

REPORT INFORMATION
  Report Type: Spontaneous
  Country: US (occurrence: None)
  Receive Date: 20160531
  Receipt Date: 20160531
  Transmission Date: 20160815
  Serious: Yes (Hospitalization)
  Sender: FDA-Public Use
  Company Number: None

PATIENT
  Age: 32 Year
  Sex: Female

DRUGS (17)
  1. PROCRIT [Suspect]
     Active Substance: ERYTHROPOIETIN
     Indication: ANAEMIA
     Dosage: 4000 UNITS
     Route: 058
     Dates: start: 201508
  2. AMOX/K CLAV [Concomitant]
     Active Substance: AMOXICILLIN\CLAVULANATE POTASSIUM
  3. ATENOLOL. [Concomitant]
     Active Substance: ATENOLOL
  4. CARISOPRODOL. [Concomitant]
     Active Substance: CARISOPRODOL
  5. ZOLPIDEM [Concomitant]
     Active Substance: ZOLPIDEM\ZOLPIDEM TARTRATE
  6. TRAMAOL [Concomitant]
  7. MONTELUKAST [Concomitant]
     Active Substance: MONTELUKAST SODIUM
  8. MICROGESTIN FE [Concomitant]
     Active Substance: ETHINYL ESTRADIOL\FERROUS FUMARATE\NORETHINDRONE ACETATE
  9. COZAAR [Concomitant]
     Active Substance: LOSARTAN POTASSIUM
  10. AMITIZA [Concomitant]
     Active Substance: LUBIPROSTONE
  11. XOPENEX [Concomitant]
     Active Substance: LEVALBUTEROL HYDROCHLORIDE
  12. PREDNISONE. [Concomitant]
     Active Substance: PREDNISONE
  13. ZYFLO [Concomitant]
     Active Substance: ZILEUTON
  14. NUVIGIL [Concomitant]
     Active Substance: ARMODAFINIL
  15. BUPROPION. [Concomitant]
     Active Substance: BUPROPION
  16. DISOPYRAMIDE [Concomitant]
     Active Substance: DISOPYRAMIDE
  17. SERTRALINE [Concomitant]
     Active Substance: SERTRALINE HYDROCHLORIDE

REACTIONS (1)
  - Appendicitis [None]

NARRATIVE: CASE EVENT DATE: 201605
